FAERS Safety Report 20317571 (Version 1)
Quarter: 2022Q1

REPORT INFORMATION
  Report Type: Spontaneous
  Country: US (occurrence: None)
  Receive Date: 20220107
  Receipt Date: 20220107
  Transmission Date: 20220424
  Serious: Yes (Other)
  Sender: FDA-Public Use
  Company Number: None

PATIENT
  Age: 9 Year
  Sex: Female
  Weight: 38.25 kg

DRUGS (1)
  1. LUPRON DEPOT [Suspect]
     Active Substance: LEUPROLIDE ACETATE
     Indication: Precocious puberty
     Dosage: 30MG INTRAMUSCULAR
     Route: 030
     Dates: start: 20210614, end: 20210614

REACTIONS (4)
  - Injury [None]
  - Pain [None]
  - Inflammation [None]
  - Neoplasm malignant [None]

NARRATIVE: CASE EVENT DATE: 20210820
